FAERS Safety Report 21337010 (Version 2)
Quarter: 2022Q3

REPORT INFORMATION
  Report Type: Spontaneous
  Country: US (occurrence: US)
  Receive Date: 20220915
  Receipt Date: 20220927
  Transmission Date: 20221027
  Serious: Yes (Life-Threatening, Hospitalization)
  Sender: FDA-Public Use
  Company Number: US-drreddys-LIT/USA/22/0154445

PATIENT
  Age: 53 Year
  Sex: Male

DRUGS (6)
  1. THIAMINE HYDROCHLORIDE [Suspect]
     Active Substance: THIAMINE HYDROCHLORIDE
     Indication: Alcohol poisoning
  2. PYRIDOXINE HYDROCHLORIDE [Suspect]
     Active Substance: PYRIDOXINE HYDROCHLORIDE
     Indication: Alcohol poisoning
  3. FOLIC ACID [Suspect]
     Active Substance: FOLIC ACID
     Indication: Alcohol poisoning
  4. FOMEPIZOLE [Suspect]
     Active Substance: FOMEPIZOLE
     Indication: Alcohol poisoning
  5. SODIUM BICARBONATE [Suspect]
     Active Substance: SODIUM BICARBONATE
     Indication: Alcohol poisoning
  6. LEUCOVORIN [Suspect]
     Active Substance: LEUCOVORIN
     Indication: Alcohol poisoning

REACTIONS (6)
  - Therapy non-responder [Unknown]
  - Haemorrhage [Unknown]
  - Brain oedema [Unknown]
  - Brain herniation [Unknown]
  - Brain injury [Unknown]
  - Product use in unapproved indication [Unknown]
